FAERS Safety Report 9671824 (Version 1)
Quarter: 2013Q4

REPORT INFORMATION
  Report Type: Spontaneous
  Country: US (occurrence: US)
  Receive Date: 20131106
  Receipt Date: 20131106
  Transmission Date: 20140711
  Serious: No
  Sender: FDA-Public Use
  Company Number: US-BAYER-2013-135013

PATIENT
  Sex: Female

DRUGS (3)
  1. ALEVE CAPLET [Suspect]
     Indication: TOOTHACHE
  2. MUCINEX [Suspect]
     Indication: TOOTHACHE
  3. ADVIL COLD + SINUS [Suspect]
     Indication: TOOTHACHE

REACTIONS (1)
  - Drug ineffective [None]
